FAERS Safety Report 7740468-6 (Version None)
Quarter: 2011Q3

REPORT INFORMATION
  Report Type: 
  Country: None (occurrence: None)
  Receive Date: 20110909
  Receipt Date: 20110831
  Transmission Date: 20111222
  Serious: Yes (Hospitalization)
  Sender: FDA-Public Use
  Company Number: US-GENZYME-CLOF-1001771

PATIENT
  Age: 81 Year
  Sex: Female

DRUGS (2)
  1. CLOLAR [Suspect]
     Indication: ACUTE MYELOID LEUKAEMIA
     Dosage: 20 MG, QD (DAYS 1-5)
     Route: 048
     Dates: start: 20110815, end: 20110819
  2. CYTARABINE [Suspect]
     Indication: ACUTE MYELOID LEUKAEMIA
     Dosage: 20 MG/M2, QD (DAYS 1- 14)
     Route: 065
     Dates: start: 20110815

REACTIONS (7)
  - HYPOKALAEMIA [None]
  - FEBRILE NEUTROPENIA [None]
  - METABOLIC ENCEPHALOPATHY [None]
  - MENTAL STATUS CHANGES [None]
  - COAGULOPATHY [None]
  - HYPOCALCAEMIA [None]
  - PANCYTOPENIA [None]
